FAERS Safety Report 7676491-X (Version None)
Quarter: 2011Q3

REPORT INFORMATION
  Report Type: 
  Country: None (occurrence: None)
  Receive Date: 20110811
  Receipt Date: 20110804
  Transmission Date: 20111222
  Serious: Yes (Other)
  Sender: FDA-Public Use
  Company Number: US-BAYER-2011-064701

PATIENT
  Age: 67 Year
  Sex: Female

DRUGS (3)
  1. NEXAVAR [Suspect]
     Dosage: 400 MG, BID
     Route: 048
     Dates: start: 20110720
  2. NEXAVAR [Suspect]
     Indication: HEPATIC NEOPLASM MALIGNANT
     Dosage: 200 MG, BID
     Route: 048
     Dates: start: 20110701
  3. NEXAVAR [Suspect]
     Dosage: 200 MG AM, 400 MG PM
     Route: 048
     Dates: start: 20110727

REACTIONS (11)
  - DRY SKIN [None]
  - BLISTER [None]
  - ALOPECIA [None]
  - DIARRHOEA [None]
  - ABDOMINAL PAIN [None]
  - SPUTUM INCREASED [None]
  - PARAESTHESIA [None]
  - TONGUE DISORDER [None]
  - DYSSTASIA [None]
  - SKIN FISSURES [None]
  - PAIN IN EXTREMITY [None]
